FAERS Safety Report 24293440 (Version 1)
Quarter: 2024Q3

REPORT INFORMATION
  Report Type: Spontaneous
  Country: US (occurrence: None)
  Receive Date: 20240906
  Receipt Date: 20240906
  Transmission Date: 20241016
  Serious: No
  Sender: DOMPE FARMACEUTICI
  Company Number: US-FARMAPROD-202308-202401-0143

PATIENT
  Sex: Female

DRUGS (15)
  1. OXERVATE [Suspect]
     Active Substance: CENEGERMIN-BKBJ
     Indication: Neurotrophic keratopathy
     Route: 047
     Dates: start: 20231115
  2. PREDNISONE [Concomitant]
     Active Substance: PREDNISONE
  3. CEPHALEXIN [Concomitant]
     Active Substance: CEPHALEXIN
  4. GENTEAL TEARS SEVERE [Concomitant]
     Active Substance: HYPROMELLOSE 2910 (4000 MPA.S)
  5. DULOXETINE HYDROCHLORIDE [Concomitant]
     Active Substance: DULOXETINE HYDROCHLORIDE
  6. REFRESH TEARS [Concomitant]
     Active Substance: CARBOXYMETHYLCELLULOSE SODIUM
  7. HYDROCHLOROTHIAZIDE\LOSARTAN [Concomitant]
     Active Substance: HYDROCHLOROTHIAZIDE\LOSARTAN
  8. LEVOTHYROXINE SODIUM [Concomitant]
     Active Substance: LEVOTHYROXINE SODIUM
  9. CARVEDILOL [Concomitant]
     Active Substance: CARVEDILOL
  10. DULOXETINE HYDROCHLORIDE [Concomitant]
     Active Substance: DULOXETINE HYDROCHLORIDE
  11. CLINDAMYCIN HYDROCHLORIDE [Concomitant]
     Active Substance: CLINDAMYCIN HYDROCHLORIDE
  12. OMEPRAZOLE [Concomitant]
     Active Substance: OMEPRAZOLE
  13. TESTOSTERONE [Concomitant]
     Active Substance: TESTOSTERONE
     Dosage: (1%) GEL PACKET
  14. PRAMIPEXOLE DIHYDROCHLORIDE [Concomitant]
     Active Substance: PRAMIPEXOLE DIHYDROCHLORIDE
  15. PROGESTERONE [Concomitant]
     Active Substance: PROGESTERONE

REACTIONS (1)
  - Product storage error [Unknown]
